FAERS Safety Report 8046698-0 (Version None)
Quarter: 2012Q1

REPORT INFORMATION
  Report Type: 
  Country: None (occurrence: None)
  Receive Date: 20120116
  Receipt Date: 20120107
  Transmission Date: 20120608
  Serious: Yes (Hospitalization)
  Sender: FDA-Public Use
  Company Number: US-BRISTOL-MYERS SQUIBB COMPANY-16336968

PATIENT
  Age: 20 Year
  Sex: Female
  Weight: 60 kg

DRUGS (10)
  1. IPILIMUMAB [Suspect]
     Indication: NEOPLASM
     Dosage: LAST DOSE: 22DEC2011
     Route: 042
     Dates: start: 20111130
  2. NEURONTIN [Concomitant]
  3. DIPHENHYDRAMINE HCL [Concomitant]
  4. LORAZEPAM [Concomitant]
  5. ACETAMINOPHEN [Concomitant]
  6. BACTROBAN [Concomitant]
  7. NEOCON [Concomitant]
  8. IBUPROFEN [Concomitant]
  9. DICLOFENAC [Concomitant]
  10. METAMUCIL-2 [Concomitant]

REACTIONS (2)
  - FOLLICULITIS [None]
  - SKIN INFECTION [None]
